FAERS Safety Report 15499013 (Version 2)
Quarter: 2018Q4

REPORT INFORMATION
  Report Type: Spontaneous
  Country: US (occurrence: US)
  Receive Date: 20181015
  Receipt Date: 20181224
  Transmission Date: 20190205
  Serious: Yes (Hospitalization)
  Sender: FDA-Public Use
  Company Number: US-US WORLDMEDS, LLC-USW201810-001447

PATIENT
  Sex: Male
  Weight: 104.32 kg

DRUGS (16)
  1. LUCEMYRA [Suspect]
     Active Substance: LOFEXIDINE
     Dates: start: 20180925
  2. LUCEMYRA [Suspect]
     Active Substance: LOFEXIDINE
     Indication: DRUG WITHDRAWAL SYNDROME
     Dosage: 0.18 MG TABLETS FOUR TIMES A DAY
     Dates: start: 20180924
  3. PRAVASTATIN. [Concomitant]
     Active Substance: PRAVASTATIN
     Indication: BLOOD CHOLESTEROL INCREASED
  4. VENTOLIN [Concomitant]
     Active Substance: ALBUTEROL SULFATE
  5. SYMBICORT [Concomitant]
     Active Substance: BUDESONIDE\FORMOTEROL FUMARATE DIHYDRATE
  6. LUCEMYRA [Suspect]
     Active Substance: LOFEXIDINE
     Dosage: ONE TABLETS FOUR TIMES A DAY ON 9TH DAY
  7. FLUOXETINE [Concomitant]
     Active Substance: FLUOXETINE HYDROCHLORIDE
  8. LASIX [Concomitant]
     Active Substance: FUROSEMIDE
  9. LUCEMYRA [Suspect]
     Active Substance: LOFEXIDINE
     Dosage: TWO TABLETS FOUR TIMES A DAY ON 7TH DAY
  10. LUCEMYRA [Suspect]
     Active Substance: LOFEXIDINE
     Dosage: ONE TABLET FOUR TIMES A DAY ON 8TH DAY
  11. NAPROXEN. [Concomitant]
     Active Substance: NAPROXEN
  12. PROZAC [Concomitant]
     Active Substance: FLUOXETINE HYDROCHLORIDE
     Indication: ANXIETY
  13. OLANZAPINE. [Concomitant]
     Active Substance: OLANZAPINE
     Indication: LEUKAEMIA
  14. TRAMADOL. [Concomitant]
     Active Substance: TRAMADOL
     Indication: BACK PAIN
  15. DIAZEPAM. [Concomitant]
     Active Substance: DIAZEPAM
  16. VOLTAREN [Concomitant]
     Active Substance: DICLOFENAC SODIUM

REACTIONS (4)
  - Cardiac failure congestive [Recovered/Resolved]
  - Pericardial effusion [Recovered/Resolved]
  - Pleural effusion [Recovered/Resolved]
  - Bradycardia [Unknown]
